FAERS Safety Report 19187637 (Version 1)
Quarter: 2021Q2

REPORT INFORMATION
  Report Type: Report from Study
  Country: None (occurrence: US)
  Receive Date: 20210428
  Receipt Date: 20210428
  Transmission Date: 20210717
  Serious: Yes (Hospitalization)
  Sender: FDA-Public Use
  Company Number: US-ABBVIE-21K-163-3865610-00

PATIENT
  Sex: Female

DRUGS (2)
  1. VENCLEXTA [Suspect]
     Active Substance: VENETOCLAX
     Indication: ACUTE MYELOID LEUKAEMIA
     Dosage: DOSE 100 MILLIGRAMS?3 TABLETS DAILY FOR 2 WEEKS ON, THEN 3 WEEKS OFF
     Route: 048
     Dates: start: 20191219
  2. VENCLEXTA [Suspect]
     Active Substance: VENETOCLAX
     Indication: ACUTE MYELOID LEUKAEMIA RECURRENT

REACTIONS (6)
  - Transfusion [Not Recovered/Not Resolved]
  - Atrial fibrillation [Not Recovered/Not Resolved]
  - Platelet transfusion [Not Recovered/Not Resolved]
  - Nausea [Not Recovered/Not Resolved]
  - Gout [Not Recovered/Not Resolved]
  - Dyspnoea [Not Recovered/Not Resolved]
